FAERS Safety Report 9834790 (Version 1)
Quarter: 2014Q1

REPORT INFORMATION
  Report Type: Spontaneous
  Country: US (occurrence: US)
  Receive Date: 20140122
  Receipt Date: 20140122
  Transmission Date: 20141002
  Serious: No
  Sender: FDA-Public Use
  Company Number: US-BAXTER-2014BAX000751

PATIENT
  Age: 64 Year
  Sex: Female

DRUGS (2)
  1. GAMMAGARD LIQUID [Suspect]
     Indication: PRODUCT USED FOR UNKNOWN INDICATION
     Dates: start: 20131226
  2. GAMMAGARD LIQUID [Suspect]
     Dates: start: 20140102

REACTIONS (2)
  - Infusion site swelling [Unknown]
  - Myalgia [Unknown]
